FAERS Safety Report 19396156 (Version 1)
Quarter: 2021Q2

REPORT INFORMATION
  Report Type: Other
  Country: IT (occurrence: IT)
  Receive Date: 20210610
  Receipt Date: 20210610
  Transmission Date: 20210717
  Serious: Yes (Other)
  Sender: FDA-Public Use
  Company Number: IT-CELLTRION INC.-2021IT007414

PATIENT

DRUGS (13)
  1. UNASYN [Concomitant]
     Active Substance: AMPICILLIN SODIUM\SULBACTAM SODIUM
     Dosage: 3.6 G, QD
  2. ITRACONAZOLE. [Suspect]
     Active Substance: ITRACONAZOLE
     Indication: PROPHYLAXIS
     Dosage: 100 MG, QD
     Route: 048
     Dates: start: 20210218, end: 20210304
  3. EUTIROX [Concomitant]
     Active Substance: LEVOTHYROXINE SODIUM
     Indication: WILLIAMS SYNDROME
     Dosage: 25 UG, QD
     Route: 048
  4. TINSET [Concomitant]
     Active Substance: OXATOMIDE
     Dosage: 12 [DRP], QD
  5. METHYLPREDNISOLONE. [Suspect]
     Active Substance: METHYLPREDNISOLONE
     Indication: CHRONIC GRANULOMATOUS DISEASE
     Dosage: 35 MG, QD
     Route: 042
     Dates: start: 20210301, end: 20210302
  6. AZATHIOPRINE. [Concomitant]
     Active Substance: AZATHIOPRINE
     Indication: CHRONIC GRANULOMATOUS DISEASE
     Dosage: 50 MG, QD
     Dates: start: 20200101, end: 20210225
  7. SIMETHICONE (DIMETHICONE) [Concomitant]
     Active Substance: DIMETHICONE
     Indication: ABDOMINAL PAIN
     Dosage: 60 [DRP], QD
     Route: 048
     Dates: start: 20210302
  8. PREDNISONE. [Concomitant]
     Active Substance: PREDNISONE
     Indication: CHRONIC GRANULOMATOUS DISEASE
     Dosage: 35 MG, QD
     Dates: start: 20210303
  9. DIBASE [Concomitant]
     Active Substance: CHOLECALCIFEROL
     Indication: VITAMIN D DEFICIENCY
     Dosage: 3 [DRP], QD
     Route: 048
  10. BACTRIM [Suspect]
     Active Substance: SULFAMETHOXAZOLE\TRIMETHOPRIM
     Indication: PROPHYLAXIS
     Dosage: 7 ML, QD
     Route: 058
     Dates: start: 20210218, end: 20210304
  11. MESALAZINE [Concomitant]
     Active Substance: MESALAMINE
     Indication: CHRONIC GRANULOMATOUS DISEASE
     Dosage: 1600 MG, QD
     Route: 048
  12. INFLIXIMAB (UNKNOWN) [Suspect]
     Active Substance: INFLIXIMAB
     Indication: CHRONIC GRANULOMATOUS DISEASE
     Dosage: 150 MG, QD
     Route: 042
     Dates: start: 20210218, end: 20210304
  13. METRONIDAZOLE. [Suspect]
     Active Substance: METRONIDAZOLE
     Indication: CHRONIC GRANULOMATOUS DISEASE
     Dosage: 525 MG, QD
     Route: 042
     Dates: start: 20210218, end: 20210301

REACTIONS (4)
  - Off label use [Unknown]
  - Sinus tachycardia [Not Recovered/Not Resolved]
  - Drug interaction [Not Recovered/Not Resolved]
  - Hypertension [Not Recovered/Not Resolved]

NARRATIVE: CASE EVENT DATE: 20210303
